FAERS Safety Report 6430962-2 (Version None)
Quarter: 2009Q4

REPORT INFORMATION
  Report Type: 
  Country: None (occurrence: None)
  Receive Date: 20091106
  Receipt Date: 20091028
  Transmission Date: 20100525
  Serious: Yes (Other)
  Sender: FDA-Public Use
  Company Number: BR-PFIZER INC-2009242571

PATIENT
  Sex: Female

DRUGS (2)
  1. FELDENE [Suspect]
     Indication: OSTEOARTHRITIS
     Dosage: UNK
     Dates: start: 19890101
  2. FELDENE [Suspect]

REACTIONS (8)
  - ARTHRALGIA [None]
  - DIABETES MELLITUS [None]
  - GASTRIC HAEMORRHAGE [None]
  - HAEMATEMESIS [None]
  - INFARCTION [None]
  - JOINT SWELLING [None]
  - SURGERY [None]
  - VENOUS OCCLUSION [None]
